FAERS Safety Report 8430488-0 (Version None)
Quarter: 2012Q2

REPORT INFORMATION
  Report Type: 
  Country: None (occurrence: None)
  Receive Date: 20120323
  Receipt Date: 20110825
  Transmission Date: 20120825
  Serious: Yes (Hospitalization)
  Sender: FDA-Public Use
  Company Number: 163-21880-11060866

PATIENT
  Age: 58 Year
  Sex: Male

DRUGS (4)
  1. DECADRON [Concomitant]
  2. REVLIMID [Suspect]
     Indication: MULTIPLE MYELOMA
     Dosage: 25 MG, DAILY FOR 14 DAYS OF 21, PO; 25 MG, DAILY FOR 14 DAYS OF 21, PO
     Route: 048
     Dates: start: 20110308, end: 20110531
  3. REVLIMID [Suspect]
     Indication: MULTIPLE MYELOMA
     Dosage: 25 MG, DAILY FOR 14 DAYS OF 21, PO; 25 MG, DAILY FOR 14 DAYS OF 21, PO
     Route: 048
     Dates: start: 20110519
  4. VELCADE [Concomitant]

REACTIONS (1)
  - DERMATITIS [None]
